FAERS Safety Report 10690374 (Version 1)
Quarter: 2015Q1

REPORT INFORMATION
  Report Type: Spontaneous
  Country: US (occurrence: US)
  Receive Date: 20150105
  Receipt Date: 20150105
  Transmission Date: 20150720
  Serious: Yes (Other)
  Sender: FDA-Public Use
  Company Number: US-ACTAVIS-2014-27730

PATIENT
  Age: 43 Year
  Sex: Female
  Weight: 61 kg

DRUGS (4)
  1. LYRICA [Concomitant]
     Active Substance: PREGABALIN
     Indication: PAIN
     Dosage: 100 MG, TID
     Route: 048
  2. FENTANYL-25 (WATSON LABORATORIES) [Suspect]
     Active Substance: FENTANYL
     Indication: PAIN
     Dosage: 25 MCG/HR, Q 3 DAYS
     Route: 062
     Dates: start: 20141218
  3. VICODIN [Concomitant]
     Active Substance: ACETAMINOPHEN\HYDROCODONE BITARTRATE
     Indication: PAIN
     Dosage: 10/325 MG, BID
     Route: 048
  4. TIZANIDINE                         /00740702/ [Concomitant]
     Indication: MUSCLE RELAXANT THERAPY
     Dosage: 6 MG, DAILY
     Route: 048

REACTIONS (4)
  - Malaise [Not Recovered/Not Resolved]
  - Wrong technique in drug usage process [Unknown]
  - Haematemesis [Not Recovered/Not Resolved]
  - Abdominal pain [Not Recovered/Not Resolved]

NARRATIVE: CASE EVENT DATE: 20141222
